FAERS Safety Report 4281149-3 (Version None)
Quarter: 2004Q1

REPORT INFORMATION
  Report Type: 
  Country: None (occurrence: None)
  Receive Date: 20040129
  Receipt Date: 20040116
  Transmission Date: 20041129
  Serious: Yes (Other)
  Sender: FDA-Public Use
  Company Number: PHNU2004DE00601

PATIENT
  Age: 74 Year
  Sex: Female

DRUGS (3)
  1. SANDIMMUNE [Suspect]
     Indication: TRANSPLANT
     Route: 048
     Dates: start: 20031201
  2. SANDIMMUNE [Suspect]
     Indication: TRANSPLANT
     Dosage: 25 MG, BID
     Route: 048
  3. CORTISONE [Concomitant]

REACTIONS (6)
  - ASTHENIA [None]
  - CONFUSIONAL STATE [None]
  - DRUG LEVEL INCREASED [None]
  - FATIGUE [None]
  - GAIT DISTURBANCE [None]
  - PSYCHOTIC DISORDER [None]
